FAERS Safety Report 5942799-9 (Version None)
Quarter: 2008Q4

REPORT INFORMATION
  Report Type: 
  Country: None (occurrence: None)
  Receive Date: 20081103
  Receipt Date: 20081023
  Transmission Date: 20090506
  Serious: Yes (Other)
  Sender: FDA-Public Use
  Company Number: 2007BI005147

PATIENT
  Sex: Female
  Weight: 70.3075 kg

DRUGS (3)
  1. AVONEX [Suspect]
     Indication: MULTIPLE SCLEROSIS
     Dosage: 30 UG; QW; IM, IM, IM
     Route: 030
     Dates: start: 20000929, end: 20030101
  2. AVONEX [Suspect]
     Indication: MULTIPLE SCLEROSIS
     Dosage: 30 UG; QW; IM, IM, IM
     Route: 030
     Dates: start: 20030101, end: 20070501
  3. AVONEX [Suspect]
     Indication: MULTIPLE SCLEROSIS
     Dosage: 30 UG; QW; IM, IM, IM
     Route: 030
     Dates: start: 20070801

REACTIONS (1)
  - BREAST CANCER FEMALE [None]
